FAERS Safety Report 9936837 (Version 1)
Quarter: 2014Q1

REPORT INFORMATION
  Report Type: Spontaneous
  Country: US (occurrence: None)
  Receive Date: 20140110
  Receipt Date: 20140110
  Transmission Date: 20141002
  Serious: Yes (Other)
  Sender: FDA-Public Use
  Company Number: E2B_00001316

PATIENT
  Age: 40 Year
  Sex: Female

DRUGS (2)
  1. LEVETIRACETAM [Suspect]
     Indication: CONVULSION
     Dosage: 1000 MG (500 MG, 2 IN 1 D), PER ORAL
     Route: 048
     Dates: start: 20121019
  2. LAMOTRIGINE (LAMICATAL) (LAMOTRIGINE) [Concomitant]

REACTIONS (3)
  - Convulsion [None]
  - Drug level decreased [None]
  - Drug ineffective [None]
